FAERS Safety Report 24958540 (Version 1)
Quarter: 2025Q1

REPORT INFORMATION
  Report Type: Spontaneous
  Country: CA (occurrence: CA)
  Receive Date: 20250212
  Receipt Date: 20250212
  Transmission Date: 20250409
  Serious: Yes (Hospitalization)
  Sender: ROCHE
  Company Number: CA-002147023-NVSC2025CA020924

PATIENT
  Age: 57 Year
  Sex: Male

DRUGS (1)
  1. OMALIZUMAB [Suspect]
     Active Substance: OMALIZUMAB
     Indication: Chronic spontaneous urticaria
     Dosage: 300 MG, Q4W
     Route: 050

REACTIONS (6)
  - Cervical vertebral fracture [Recovering/Resolving]
  - Coma [Recovering/Resolving]
  - Intervertebral disc protrusion [Recovering/Resolving]
  - Rib fracture [Recovering/Resolving]
  - Road traffic accident [Unknown]
  - Spinal fracture [Recovering/Resolving]
